FAERS Safety Report 21131144 (Version 2)
Quarter: 2022Q3

REPORT INFORMATION
  Report Type: Spontaneous
  Country: US (occurrence: US)
  Receive Date: 20220726
  Receipt Date: 20220810
  Transmission Date: 20221027
  Serious: No
  Sender: FDA-Public Use
  Company Number: US-Blueprint Medicines Corporation-284

PATIENT
  Age: 63 Year
  Sex: Male
  Weight: 81.1 kg

DRUGS (9)
  1. AYVAKIT [Suspect]
     Active Substance: AVAPRITINIB
     Indication: Systemic mastocytosis
     Route: 048
     Dates: start: 20220519
  2. AYVAKIT [Suspect]
     Active Substance: AVAPRITINIB
     Route: 048
     Dates: start: 20220124, end: 20220222
  3. AYVAKIT [Suspect]
     Active Substance: AVAPRITINIB
     Route: 048
     Dates: start: 20220223, end: 20220325
  4. AYVAKIT [Suspect]
     Active Substance: AVAPRITINIB
     Dosage: 100MG ALTERNATING WITH 200MG EVERY OTHER DAY
     Route: 048
     Dates: start: 20220326, end: 20220518
  5. AYVAKIT [Suspect]
     Active Substance: AVAPRITINIB
     Dosage: 100MG ALTERNATING WITH 200MG EVERY OTHER DAY
     Route: 048
     Dates: start: 20220326, end: 20220518
  6. PROMETHAZINE [Concomitant]
     Active Substance: PROMETHAZINE HYDROCHLORIDE
     Indication: Nausea
     Route: 065
     Dates: start: 20220420
  7. CLONAZEPAM [Concomitant]
     Active Substance: CLONAZEPAM
     Indication: Insomnia
     Route: 065
     Dates: start: 20220220
  8. FLUOXETINE [Concomitant]
     Active Substance: FLUOXETINE HYDROCHLORIDE
     Indication: Depression
     Route: 065
     Dates: start: 20220221
  9. APIXABAN [Concomitant]
     Active Substance: APIXABAN
     Indication: Deep vein thrombosis
     Route: 065
     Dates: start: 20210810

REACTIONS (6)
  - Nucleated red cells [Not Recovered/Not Resolved]
  - Blood calcium decreased [Recovered/Resolved]
  - Headache [Unknown]
  - Face oedema [Unknown]
  - Fatigue [Unknown]
  - Anaemia [Unknown]

NARRATIVE: CASE EVENT DATE: 20220412
